FAERS Safety Report 24943011 (Version 1)
Quarter: 2025Q1

REPORT INFORMATION
  Report Type: Spontaneous
  Country: US (occurrence: US)
  Receive Date: 20250207
  Receipt Date: 20250207
  Transmission Date: 20250408
  Serious: Yes (Death)
  Sender: LABORATOIRES SERB
  Company Number: US-SERB S.A.S.-2170374

PATIENT
  Age: 5 Decade
  Weight: 54 kg

DRUGS (10)
  1. DIGIFAB [Suspect]
     Active Substance: OVINE DIGOXIN IMMUNE FAB
     Indication: Toxicity to various agents
  2. DIGOXIN [Suspect]
     Active Substance: DIGOXIN
  3. CALCIUM [Suspect]
     Active Substance: CALCIUM
  4. MAGNESIUM [Suspect]
     Active Substance: MAGNESIUM
  5. AMIODARONE HYDROCHLORIDE [Suspect]
     Active Substance: AMIODARONE HYDROCHLORIDE
  6. INSULIN NOS [Suspect]
     Active Substance: INSULIN NOS
  7. SODIUM BICARBONATE [Suspect]
     Active Substance: SODIUM BICARBONATE
  8. ALCOHOL [Suspect]
     Active Substance: ALCOHOL
  9. ACETAMINOPHEN AND CODEINE [Suspect]
     Active Substance: ACETAMINOPHEN\CODEINE PHOSPHATE
  10. DEXTROSE [Suspect]
     Active Substance: DEXTROSE MONOHYDRATE

REACTIONS (4)
  - Tachycardia [Fatal]
  - Underdose [Unknown]
  - Cardiac arrest [Fatal]
  - Ventricular fibrillation [Fatal]
